FAERS Safety Report 4557407-1 (Version None)
Quarter: 2005Q1

REPORT INFORMATION
  Report Type: 
  Country: None (occurrence: None)
  Receive Date: 20050120
  Receipt Date: 20040609
  Transmission Date: 20050727
  Serious: Yes (Death, Hospitalization, Other)
  Sender: FDA-Public Use
  Company Number: US-ABBOTT-04P-163-0263707-00

PATIENT
  Sex: Female
  Weight: 67 kg

DRUGS (9)
  1. HUMIRA [Suspect]
     Indication: RHEUMATOID ARTHRITIS
     Dosage: 40 MILLIGRAM
     Route: 058
     Dates: start: 20031202, end: 20040601
  2. PROPACET 100 [Concomitant]
     Indication: RHEUMATOID ARTHRITIS
     Dates: start: 19930101, end: 20040607
  3. CALCIUM GLUCONATE [Concomitant]
     Indication: MINERAL SUPPLEMENTATION
     Dates: start: 19940101, end: 20040607
  4. CYANOCOBALAMIN [Concomitant]
     Indication: ANAEMIA
     Dates: start: 19940525, end: 20040607
  5. ROFECOXIB [Concomitant]
     Indication: RHEUMATOID ARTHRITIS
     Dates: start: 19991220, end: 20040607
  6. PREDNISONE [Concomitant]
     Indication: RHEUMATOID ARTHRITIS
     Dates: start: 20020902, end: 20040607
  7. LEFLUNOMIDE [Concomitant]
     Indication: RHEUMATOID ARTHRITIS
     Dates: start: 20021220, end: 20040607
  8. IRON DEXTRAN [Concomitant]
     Indication: ANAEMIA
     Dates: start: 20030701, end: 20040607
  9. RAMIPRIL [Concomitant]
     Indication: HYPERTENSION
     Dates: start: 20030701, end: 20040607

REACTIONS (2)
  - ACUTE MYOCARDIAL INFARCTION [None]
  - PNEUMONIA [None]
